FAERS Safety Report 8840136 (Version 1)
Quarter: 2012Q4

REPORT INFORMATION
  Report Type: 
  Country: FR (occurrence: FR)
  Receive Date: 20121015
  Receipt Date: 20121015
  Transmission Date: 20130627
  Serious: Yes (Hospitalization)
  Sender: FDA-Public Use
  Company Number: FR-ROCHE-1144439

PATIENT
  Age: 14 Year
  Sex: Female

DRUGS (1)
  1. ROCEPHINE [Suspect]
     Indication: OSTEOARTHRITIS
     Route: 042

REACTIONS (2)
  - Cholelithiasis [Not Recovered/Not Resolved]
  - Biliary colic [Not Recovered/Not Resolved]
